FAERS Safety Report 8615285-5 (Version None)
Quarter: 2012Q3

REPORT INFORMATION
  Report Type: 
  Country: None (occurrence: None)
  Receive Date: 20120823
  Receipt Date: 20120820
  Transmission Date: 20120928
  Serious: No
  Sender: FDA-Public Use
  Company Number: US-PFIZER INC-2012205056

PATIENT
  Sex: Female
  Weight: 68.027 kg

DRUGS (1)
  1. NEURONTIN [Suspect]
     Indication: HERPES ZOSTER
     Dosage: UNK

REACTIONS (2)
  - VERTIGO [None]
  - DIZZINESS [None]
